FAERS Safety Report 5465687-3 (Version None)
Quarter: 2007Q3

REPORT INFORMATION
  Report Type: 
  Country: None (occurrence: None)
  Receive Date: 20070924
  Receipt Date: 20070912
  Transmission Date: 20080115
  Serious: Yes (Hospitalization)
  Sender: FDA-Public Use
  Company Number: HN-ROCHE-518707

PATIENT
  Age: 69 Year
  Sex: Female

DRUGS (1)
  1. BONIVA [Suspect]
     Indication: OSTEOPOROSIS
     Dosage: DOSE REGIMEN: ONE TABLET PER MONTH.
     Route: 048
     Dates: start: 20061013, end: 20070713

REACTIONS (1)
  - ARTERIAL OCCLUSIVE DISEASE [None]
